FAERS Safety Report 4542393-0 (Version None)
Quarter: 2004Q4

REPORT INFORMATION
  Report Type: 
  Country: None (occurrence: None)
  Receive Date: 20041230
  Receipt Date: 20041208
  Transmission Date: 20050328
  Serious: Yes (Death, Other)
  Sender: FDA-Public Use
  Company Number: FR-ABBOTT-04P-056-0283110-00

PATIENT
  Sex: Male

DRUGS (8)
  1. ZECLAR [Suspect]
     Indication: RASH MACULAR
     Route: 048
     Dates: start: 20040224, end: 20040225
  2. ZECLAR INJECTION [Suspect]
     Indication: RASH MACULAR
     Route: 042
     Dates: start: 20040226, end: 20040226
  3. METOPIMAZINE [Concomitant]
     Indication: DRUG USE FOR UNKNOWN INDICATION
     Route: 042
     Dates: start: 20040226, end: 20040226
  4. DOMPERIDONE [Concomitant]
     Indication: DRUG USE FOR UNKNOWN INDICATION
     Dates: start: 20040225
  5. NIFUROXAZIDE [Concomitant]
     Indication: DRUG USE FOR UNKNOWN INDICATION
     Dates: start: 20040225, end: 20040226
  6. CLORAZEPATE DIPOTASSIUM [Concomitant]
     Indication: DRUG USE FOR UNKNOWN INDICATION
  7. VALPROIC ACID [Concomitant]
     Indication: DRUG USE FOR UNKNOWN INDICATION
  8. TRIMEBUTINE [Concomitant]
     Indication: DRUG USE FOR UNKNOWN INDICATION

REACTIONS (14)
  - ABDOMINAL DISTENSION [None]
  - CARDIAC ARREST [None]
  - CHILLS [None]
  - COMA [None]
  - CYANOSIS [None]
  - HYPERHIDROSIS [None]
  - HYPERSENSITIVITY [None]
  - NAUSEA [None]
  - PALLOR [None]
  - PERITONITIS [None]
  - PNEUMOPERITONEUM [None]
  - RASH MACULAR [None]
  - RESPIRATORY DISTRESS [None]
  - VOMITING [None]
